FAERS Safety Report 4636752-5 (Version None)
Quarter: 2005Q2

REPORT INFORMATION
  Report Type: 
  Country: None (occurrence: None)
  Receive Date: 20050414
  Receipt Date: 20050405
  Transmission Date: 20051028
  Serious: Yes (Hospitalization)
  Sender: FDA-Public Use
  Company Number: 2005054591

PATIENT
  Sex: Female

DRUGS (12)
  1. ALDACTONE [Suspect]
     Indication: ILL-DEFINED DISORDER
     Dosage: 100 MG  (100 MG ONCE DAILY), ORAL
     Route: 048
     Dates: end: 20041214
  2. ENALAPRIL MALEATE [Suspect]
     Indication: ILL-DEFINED DISORDER
     Dosage: 40 MG (40 MG, ONCE DAILY), ORAL
     Route: 048
     Dates: end: 20051214
  3. INYESPRIN INYECTABLE (ACETYLSALICYLATE LYSINE, AMINOACETIC ACID) [Concomitant]
  4. NICORANDIL (NICORANDIL) [Concomitant]
  5. METOPROLOL TARTRATE [Concomitant]
  6. SIMVASTATIN [Concomitant]
  7. PANTOPRAZOLE SODIUM [Concomitant]
  8. ACETAMINOPHEN [Concomitant]
  9. ZOPICLONE (ZOPICLONE) [Concomitant]
  10. SPIRONOLACTONE [Concomitant]
  11. OXAZEPAM [Concomitant]
  12. PYRIDOXINE HCL [Concomitant]

REACTIONS (14)
  - ARRHYTHMIA [None]
  - BLOOD PRESSURE IMMEASURABLE [None]
  - BRADYCARDIA [None]
  - BUNDLE BRANCH BLOCK LEFT [None]
  - CARDIOGENIC SHOCK [None]
  - DEHYDRATION [None]
  - ELECTROCARDIOGRAM QT CORRECTED INTERVAL PROLONGED [None]
  - ELECTROCARDIOGRAM T WAVE ABNORMAL [None]
  - ELECTROLYTE IMBALANCE [None]
  - HYPERKALAEMIA [None]
  - HYPOKALAEMIA [None]
  - HYPOTENSION [None]
  - MALAISE [None]
  - RENAL FAILURE ACUTE [None]
